FAERS Safety Report 16264499 (Version 1)
Quarter: 2019Q2

REPORT INFORMATION
  Report Type: Spontaneous
  Country: US (occurrence: US)
  Receive Date: 20190327
  Receipt Date: 20190327
  Transmission Date: 20190711
  Serious: No
  Sender: FDA-Public Use
  Company Number: None

PATIENT
  Age: 58 Year
  Sex: Male
  Weight: 113.4 kg

DRUGS (9)
  1. AMLODIPINE [Suspect]
     Active Substance: AMLODIPINE BESYLATE
     Dosage: ?          QUANTITY:1 DF DOSAGE FORM;?
     Route: 048
  2. LOSARTAN POTASSIUM. [Suspect]
     Active Substance: LOSARTAN POTASSIUM
     Indication: HYPERTENSION
  3. LOSARTIN POTASSIUM [Concomitant]
  4. LOSARTAN POTASSIUM. [Suspect]
     Active Substance: LOSARTAN POTASSIUM
     Indication: BLOOD CHOLESTEROL INCREASED
     Dosage: ?          QUANTITY:1 DF DOSAGE FORM;?
     Route: 048
  5. METOPROLOL. [Concomitant]
     Active Substance: METOPROLOL
  6. WARFARIN [Concomitant]
     Active Substance: WARFARIN
  7. TYLENOL [Concomitant]
     Active Substance: ACETAMINOPHEN
  8. SIMVASTATIN. [Suspect]
     Active Substance: SIMVASTATIN
     Dosage: ?          QUANTITY:1 DF DOSAGE FORM;?
     Route: 048
  9. BENADRYL [Concomitant]
     Active Substance: DIPHENHYDRAMINE HYDROCHLORIDE

REACTIONS (5)
  - Vision blurred [None]
  - Muscle spasms [None]
  - Musculoskeletal discomfort [None]
  - Ocular discomfort [None]
  - Blepharospasm [None]

NARRATIVE: CASE EVENT DATE: 20190301
